FAERS Safety Report 5744258-5 (Version None)
Quarter: 2008Q2

REPORT INFORMATION
  Report Type: 
  Country: None (occurrence: None)
  Receive Date: 20080516
  Receipt Date: 20080516
  Transmission Date: 20081010
  Serious: Yes (Hospitalization)
  Sender: FDA-Public Use
  Company Number: None

PATIENT
  Age: 86 Year
  Sex: Male

DRUGS (2)
  1. ASPIRIN [Suspect]
  2. AGGRENOX [Suspect]
     Dosage: 1 DAILY

REACTIONS (4)
  - ABASIA [None]
  - ASTHENIA [None]
  - COGNITIVE DISORDER [None]
  - SUBDURAL HAEMATOMA [None]
